FAERS Safety Report 4571651-9 (Version None)
Quarter: 2005Q1

REPORT INFORMATION
  Report Type: 
  Country: None (occurrence: None)
  Receive Date: 20050207
  Receipt Date: 20050127
  Transmission Date: 20050727
  Serious: Yes (Other)
  Sender: FDA-Public Use
  Company Number: PHBS2005JP01638

PATIENT
  Age: 66 Year
  Sex: Female

DRUGS (2)
  1. DICLOFENAC [Suspect]
     Indication: BACK PAIN
     Route: 054
     Dates: start: 20021101, end: 20021201
  2. ZALTOPROFEN [Suspect]
     Indication: BACK PAIN
     Route: 048

REACTIONS (1)
  - PROCTITIS HAEMORRHAGIC [None]
